FAERS Safety Report 8576104-9 (Version None)
Quarter: 2012Q3

REPORT INFORMATION
  Report Type: 
  Country: None (occurrence: None)
  Receive Date: 20120725
  Receipt Date: 20120709
  Transmission Date: 20120928
  Serious: Yes (Hospitalization, Disabling, Other)
  Sender: FDA-Public Use
  Company Number: 20112MA008445

PATIENT
  Sex: Female
  Weight: 128 kg

DRUGS (48)
  1. FOSAMAX [Concomitant]
  2. MIRAPEX [Concomitant]
  3. ROCEPHIN [Concomitant]
  4. AUGMENTIN '500' [Concomitant]
  5. LASIX [Concomitant]
  6. NEXIUM [Concomitant]
  7. PHENERGAN HCL [Concomitant]
  8. POTASSIUM [Concomitant]
  9. VOLTAREN [Concomitant]
  10. METOCLOPRAMIDE [Suspect]
     Indication: NAUSEA
     Dosage: 10 MG; TID;PO
     Route: 048
     Dates: start: 20020101, end: 20100101
  11. METOCLOPRAMIDE [Suspect]
     Indication: GASTROOESOPHAGEAL REFLUX DISEASE
     Dosage: 10 MG; TID;PO
     Route: 048
     Dates: start: 20020101, end: 20100101
  12. MECLIZINE [Concomitant]
  13. REQUIP [Concomitant]
  14. SYNTHROID [Concomitant]
  15. CALCIUM [Concomitant]
  16. DETROL LA [Concomitant]
  17. DICYCLOMINE [Concomitant]
  18. POTASSIUM CHLORIDE [Concomitant]
  19. NYSTATIN [Concomitant]
  20. ROPINIROLE [Concomitant]
  21. ZESTRIL [Concomitant]
  22. AMOXICILLIN [Concomitant]
  23. LISINOPRIL [Concomitant]
  24. PROMETHAZINE W/ CODEINE [Concomitant]
  25. PROMETHAZINE [Concomitant]
  26. ZANTAC [Concomitant]
  27. ACTONEL [Concomitant]
  28. CIPROFLOXACIN [Concomitant]
  29. MUCINEX [Concomitant]
  30. PROPOXYPHENE HCL [Concomitant]
  31. RANITIDINE [Concomitant]
  32. VICODIN [Concomitant]
  33. CLARITIN [Concomitant]
  34. CORTISONE CREAM [Concomitant]
  35. DECADRON PHOSPHATE [Concomitant]
  36. DEPO-MEDROL [Concomitant]
  37. FUROSEMIDE [Concomitant]
  38. KENALOG [Concomitant]
  39. LEVOTHYROXINE SODIUM [Concomitant]
  40. MACROBID [Concomitant]
  41. OXYBUTYNIN CHLORIDE [Concomitant]
  42. PSEUDOVENT [Concomitant]
  43. AZITHROMYCIN [Concomitant]
  44. DIPHENOXYLATE HCL + ATROPINE SULFATE [Concomitant]
  45. NASONEX [Concomitant]
  46. PROTONIX [Concomitant]
  47. PHENAZOPYRIDINE HCL TAB [Concomitant]
  48. ZITHROMAX [Concomitant]

REACTIONS (41)
  - DYSKINESIA [None]
  - EAR PAIN [None]
  - OROPHARYNGEAL PAIN [None]
  - TARDIVE DYSKINESIA [None]
  - ECONOMIC PROBLEM [None]
  - HAEMATURIA [None]
  - OSTEOARTHRITIS [None]
  - RASH [None]
  - PHARYNGITIS [None]
  - NAUSEA [None]
  - COUGH [None]
  - LEUKOCYTOSIS [None]
  - COGWHEEL RIGIDITY [None]
  - CEREBRAL ATROPHY [None]
  - OSTEOPOROSIS [None]
  - DIARRHOEA [None]
  - RESTLESS LEGS SYNDROME [None]
  - HYPOAESTHESIA [None]
  - AMNESIA [None]
  - BALANCE DISORDER [None]
  - CONFUSIONAL STATE [None]
  - BACK PAIN [None]
  - MUSCLE SPASMS [None]
  - CYSTITIS [None]
  - DYSPHONIA [None]
  - BRADYARRHYTHMIA [None]
  - ESCHERICHIA URINARY TRACT INFECTION [None]
  - CEREBRAL ISCHAEMIA [None]
  - EXTRAPYRAMIDAL DISORDER [None]
  - EMOTIONAL DISORDER [None]
  - HYPERTENSION [None]
  - UPPER RESPIRATORY TRACT IRRITATION [None]
  - SYNCOPE [None]
  - PARAESTHESIA [None]
  - HYPOTHYROIDISM [None]
  - MUSCULOSKELETAL PAIN [None]
  - EMPTY SELLA SYNDROME [None]
  - STOMATITIS [None]
  - BLISTER [None]
  - AKATHISIA [None]
  - CHOREA [None]
